FAERS Safety Report 14071580 (Version 2)
Quarter: 2017Q4

REPORT INFORMATION
  Report Type: Report from Study
  Country: MX (occurrence: MX)
  Receive Date: 20171011
  Receipt Date: 20171106
  Transmission Date: 20180321
  Serious: Yes (Hospitalization, Other)
  Sender: FDA-Public Use
  Company Number: MX-ROCHE-2006285

PATIENT
  Age: 82 Year
  Sex: Male
  Weight: 56 kg

DRUGS (6)
  1. LUCENTIS [Suspect]
     Active Substance: RANIBIZUMAB
     Indication: EYE INFLAMMATION
     Dosage: 0.5 MG/ML
     Route: 031
     Dates: start: 201701
  2. LOSARTAN. [Concomitant]
     Active Substance: LOSARTAN
     Indication: PRODUCT USED FOR UNKNOWN INDICATION
     Dosage: 0.5 DF, QD
     Route: 048
  3. TAMSULOSIN [Suspect]
     Active Substance: TAMSULOSIN
     Indication: PRODUCT USED FOR UNKNOWN INDICATION
     Route: 048
  4. METFORMIN [Concomitant]
     Active Substance: METFORMIN HYDROCHLORIDE
     Indication: DIABETES MELLITUS
     Dosage: OVER 10 YEARS AGO
     Route: 048
  5. FUROSEMIDE. [Concomitant]
     Active Substance: FUROSEMIDE
     Indication: PRODUCT USED FOR UNKNOWN INDICATION
     Route: 048
  6. LUCENTIS [Suspect]
     Active Substance: RANIBIZUMAB
     Dosage: 0.5 MG/ML,
     Route: 031
     Dates: start: 201707, end: 201707

REACTIONS (17)
  - Scab [Recovering/Resolving]
  - Swelling face [Not Recovered/Not Resolved]
  - Product use in unapproved indication [Unknown]
  - Blood pressure increased [Recovered/Resolved]
  - Peripheral swelling [Recovered/Resolved]
  - Pain [Recovered/Resolved]
  - Eye swelling [Recovered/Resolved]
  - Anaemia [Not Recovered/Not Resolved]
  - Embolism [Recovered/Resolved]
  - Decreased immune responsiveness [Not Recovered/Not Resolved]
  - Blepharospasm [Recovered/Resolved]
  - Dizziness [Recovered/Resolved]
  - Rash [Unknown]
  - Herpes virus infection [Recovered/Resolved]
  - Blood glucose increased [Recovered/Resolved]
  - Intraocular pressure decreased [Unknown]
  - Peripheral vascular disorder [Recovered/Resolved]

NARRATIVE: CASE EVENT DATE: 201701
